FAERS Safety Report 14278261 (Version 2)
Quarter: 2018Q1

REPORT INFORMATION
  Report Type: Spontaneous
  Country: US (occurrence: US)
  Receive Date: 20171212
  Receipt Date: 20180326
  Transmission Date: 20180508
  Serious: No
  Sender: FDA-Public Use
  Company Number: US-PFIZER INC-2017528561

PATIENT
  Age: 52 Year
  Sex: Female

DRUGS (1)
  1. IBRANCE [Suspect]
     Active Substance: PALBOCICLIB
     Dosage: 125 MG, CYCLIC (1 CAPSULE DAILY FOR 21 DAYS THEN TAKE 7 DAYS OFF) (Q DAY X21, THEN TAKE 7 DAYS OFF)
     Route: 048
     Dates: start: 20170922

REACTIONS (9)
  - Condition aggravated [Unknown]
  - Fatigue [Recovered/Resolved]
  - Dyspepsia [Unknown]
  - Influenza like illness [Recovered/Resolved]
  - Feeling of body temperature change [Recovered/Resolved]
  - Malaise [Unknown]
  - Ulcer [Unknown]
  - Myalgia [Recovered/Resolved]
  - Vomiting [Unknown]
